FAERS Safety Report 4481854-X (Version None)
Quarter: 2004Q4

REPORT INFORMATION
  Report Type: 
  Country: None (occurrence: None)
  Receive Date: 20041022
  Receipt Date: 20041008
  Transmission Date: 20050328
  Serious: Yes (Hospitalization)
  Sender: FDA-Public Use
  Company Number: US-AMGEN-US094690

PATIENT
  Sex: Male
  Weight: 63.6 kg

DRUGS (8)
  1. SENSIPAR [Suspect]
     Indication: HYPERPARATHYROIDISM SECONDARY
     Route: 048
     Dates: start: 20040621, end: 20040711
  2. PARICALCITOL [Concomitant]
     Dates: start: 20020212
  3. CALCIUM CARBONATE [Concomitant]
     Dates: start: 20020212
  4. SEVELAMER HCL [Concomitant]
     Dates: start: 20020212
  5. CLONIDINE HCL [Concomitant]
     Route: 048
  6. EPOGEN [Concomitant]
     Indication: DIALYSIS
     Dates: start: 20020212
  7. FERROUS SULFATE TAB [Concomitant]
  8. ATENOLOL [Concomitant]
     Route: 048

REACTIONS (5)
  - BLINDNESS [None]
  - GRAND MAL CONVULSION [None]
  - HEADACHE [None]
  - HYPERTENSION [None]
  - LEUKOENCEPHALOPATHY [None]
